FAERS Safety Report 6469329-X (Version None)
Quarter: 2009Q4

REPORT INFORMATION
  Report Type: 
  Country: None (occurrence: None)
  Receive Date: 20091203
  Receipt Date: 20091124
  Transmission Date: 20100525
  Serious: Yes (Hospitalization)
  Sender: FDA-Public Use
  Company Number: PHHO2009BE13413

PATIENT
  Sex: Male
  Weight: 50.2 kg

DRUGS (2)
  1. CERTICAN [Suspect]
     Indication: LIVER TRANSPLANT
     Dosage: 1 MG, BID
  2. TACROLIMUS COMP-TAC+ [Suspect]
     Indication: LIVER TRANSPLANT

REACTIONS (4)
  - APATHY [None]
  - CONVULSION [None]
  - EPILEPSY [None]
  - MOVEMENT DISORDER [None]
